FAERS Safety Report 21876980 (Version 1)
Quarter: 2023Q1

REPORT INFORMATION
  Report Type: Report from Study
  Country: FR (occurrence: FR)
  Receive Date: 20230118
  Receipt Date: 20230118
  Transmission Date: 20230418
  Serious: Yes (Other)
  Sender: FDA-Public Use
  Company Number: FR-BAXTER-2021BAX030728

PATIENT
  Age: 21 Year

DRUGS (5)
  1. CARBOPLATIN [Suspect]
     Active Substance: CARBOPLATIN
     Indication: Hepatoblastoma
     Dosage: 10.6 MILLIGRAM PER MILLILETER (AUC 10.6 MG/ML PER MIN IN CYCLE B (1 IN 3 WK))
     Route: 065
  2. CARBOPLATIN [Suspect]
     Active Substance: CARBOPLATIN
     Dosage: 6.6 MILLIGRAM/MILLILITRE (AUC 6.6 MG/ML PER MIN IN CYCLE)
     Route: 065
  3. CISPLATIN [Suspect]
     Active Substance: CISPLATIN
     Indication: Hepatoblastoma
     Dosage: 80 MILLIGRAM/SQ. METER (CONTINUOUS 24-HOUR INFUSION (80 MG/M2,1 )
     Route: 065
  4. CISPLATIN [Suspect]
     Active Substance: CISPLATIN
     Dosage: 70 MILLIGRAM/SQ. METER (CONTINUOUS 24-HOUR INFUSION (70 MG/M2,1 ))
     Route: 065
  5. DOXORUBICIN HYDROCHLORIDE [Suspect]
     Active Substance: DOXORUBICIN HYDROCHLORIDE
     Indication: Hepatoblastoma
     Dosage: 305 MILLIGRAM/SQ. METER
     Route: 065

REACTIONS (2)
  - Cardiac dysfunction [Unknown]
  - Ejection fraction decreased [Unknown]
